FAERS Safety Report 19358840 (Version 2)
Quarter: 2021Q2

REPORT INFORMATION
  Report Type: Spontaneous
  Country: US (occurrence: US)
  Receive Date: 20210601
  Receipt Date: 20210603
  Transmission Date: 20210717
  Serious: No
  Sender: FDA-Public Use
  Company Number: US-BIOVITRUM-2021US4791

PATIENT
  Age: 52 Year
  Sex: Female

DRUGS (19)
  1. ISONIAZID. [Concomitant]
     Active Substance: ISONIAZID
  2. PREDNISONE. [Concomitant]
     Active Substance: PREDNISONE
  3. KINERET [Suspect]
     Active Substance: ANAKINRA
     Indication: PERICARDITIS
     Route: 058
     Dates: start: 20210510
  4. PROTONIX [Concomitant]
     Active Substance: PANTOPRAZOLE SODIUM
  5. IMMURAN [Concomitant]
  6. MULTIVITAMINS [Concomitant]
     Active Substance: VITAMINS
  7. FOSAMAX [Concomitant]
     Active Substance: ALENDRONATE SODIUM
  8. VITAMIN B6 [Concomitant]
     Active Substance: PYRIDOXINE HYDROCHLORIDE
  9. KINERET [Suspect]
     Active Substance: ANAKINRA
     Indication: STILL^S DISEASE
  10. MAGNESIUM SUPPLEMENTS [Concomitant]
     Active Substance: MAGNESIUM
     Indication: SUPPLEMENTATION THERAPY
  11. OXIBUTYNIN [Concomitant]
  12. CALCIUM SUPPLEMENTS [Concomitant]
     Active Substance: CALCIUM
     Indication: SUPPLEMENTATION THERAPY
  13. ALVOPRO [Concomitant]
  14. PLACINIL [Concomitant]
  15. SYNTHROID [Concomitant]
     Active Substance: LEVOTHYROXINE SODIUM
  16. GABAPANTEIN [Concomitant]
  17. ALDACTONE [Concomitant]
     Active Substance: SPIRONOLACTONE
  18. ZINC SUPPLEMENTS [Concomitant]
     Indication: SUPPLEMENTATION THERAPY
  19. BYSTOLIP [Concomitant]

REACTIONS (7)
  - Off label use [Unknown]
  - Injection site pain [Unknown]
  - Injection site reaction [Unknown]
  - Incorrect dose administered [Unknown]
  - Product use complaint [Unknown]
  - Product dose omission issue [Unknown]
  - Anxiety [Unknown]

NARRATIVE: CASE EVENT DATE: 20210510
